FAERS Safety Report 10166610 (Version 4)
Quarter: 2014Q4

REPORT INFORMATION
  Report Type: Report from Study
  Country: ES (occurrence: ES)
  Receive Date: 20140512
  Receipt Date: 20141006
  Transmission Date: 20150528
  Serious: Yes (Death, Hospitalization, Disabling)
  Sender: FDA-Public Use
  Company Number: ES-ROCHE-1081902

PATIENT
  Age: 77 Year
  Sex: Male
  Weight: 67 kg

DRUGS (22)
  1. ALMAGATE [Concomitant]
     Active Substance: ALMAGATE
     Indication: PROPHYLAXIS
     Route: 065
     Dates: start: 20120425, end: 20120802
  2. ALLOPURINOL. [Concomitant]
     Active Substance: ALLOPURINOL
     Route: 065
     Dates: start: 20120125, end: 20120802
  3. RANITIDINE [Concomitant]
     Active Substance: RANITIDINE\RANITIDINE HYDROCHLORIDE
     Indication: GASTRITIS
     Route: 065
     Dates: start: 20120118, end: 20120621
  4. SALBUTAMOL INHALER [Concomitant]
     Indication: ASTHMA
     Route: 065
     Dates: end: 20120802
  5. VALSARTAN. [Concomitant]
     Active Substance: VALSARTAN
     Indication: HYPERTENSION
     Route: 065
     Dates: start: 20120425, end: 20120718
  6. PARACETAMOL [Concomitant]
     Active Substance: ACETAMINOPHEN
     Indication: PYREXIA
     Route: 065
     Dates: start: 20120616, end: 20120619
  7. BENDAMUSTINE [Suspect]
     Active Substance: BENDAMUSTINE
     Indication: NON-HODGKIN^S LYMPHOMA
     Dosage: LAST DOSE PRIOR TO SAE: 24/MAY/2012
     Route: 042
     Dates: start: 20120126
  8. TRAMADOL [Concomitant]
     Active Substance: TRAMADOL
     Indication: BACK PAIN
     Route: 065
     Dates: start: 20120424, end: 20120802
  9. ZOLPIDEM [Concomitant]
     Active Substance: ZOLPIDEM\ZOLPIDEM TARTRATE
     Indication: PALLIATIVE CARE
     Route: 065
     Dates: start: 20120718, end: 20120802
  10. TEOFILINA [Concomitant]
     Route: 065
     Dates: start: 20120802
  11. RED BLOOD CELL CONCENTRATE [Concomitant]
     Active Substance: HUMAN RED BLOOD CELL
     Indication: ANAEMIA
     Route: 065
     Dates: start: 20120612, end: 20120612
  12. METFORMIN [Concomitant]
     Active Substance: METFORMIN HYDROCHLORIDE
     Indication: DIABETES MELLITUS
     Route: 065
     Dates: end: 20120708
  13. INSULINA [Concomitant]
     Indication: HYPERGLYCAEMIA
     Route: 065
     Dates: start: 20120210, end: 20120802
  14. LOSARTAN [Concomitant]
     Active Substance: LOSARTAN
     Indication: HYPERTENSION
     Route: 065
     Dates: start: 20120718, end: 20120802
  15. OMEPRAZOL [Concomitant]
     Active Substance: OMEPRAZOLE
     Indication: PROPHYLAXIS
     Route: 065
     Dates: start: 20120622, end: 20120802
  16. OBINUTUZUMAB [Suspect]
     Active Substance: OBINUTUZUMAB
     Indication: NON-HODGKIN^S LYMPHOMA
     Dosage: LAST DOSE PRIOR TO SAE: 23/MAY/2012
     Route: 042
     Dates: start: 20120125
  17. MORPHINE [Concomitant]
     Active Substance: MORPHINE
     Indication: PAIN
     Route: 065
     Dates: start: 20120704, end: 20120802
  18. LACTITOL [Concomitant]
     Active Substance: LACTITOL
     Indication: CONSTIPATION
     Route: 065
     Dates: start: 20120718, end: 20120802
  19. HUMALOG [Concomitant]
     Active Substance: INSULIN LISPRO
     Indication: DIABETES MELLITUS
     Route: 065
     Dates: end: 20120802
  20. BUDESONIDE INHALER [Concomitant]
     Indication: ASTHMA
     Route: 065
     Dates: end: 20120802
  21. IPRATROPIO BROMURO [Concomitant]
     Active Substance: IPRATROPIUM BROMIDE
     Indication: ASTHMA
     Route: 065
     Dates: end: 20120802
  22. CIPROFLOXACIN. [Concomitant]
     Active Substance: CIPROFLOXACIN
     Indication: URINARY TRACT INFECTION
     Route: 065
     Dates: start: 20120517, end: 20120524

REACTIONS (1)
  - Vascular pseudoaneurysm [Fatal]

NARRATIVE: CASE EVENT DATE: 20120622
